FAERS Safety Report 14534174 (Version 1)
Quarter: 2018Q1

REPORT INFORMATION
  Report Type: Report from Study
  Country: US (occurrence: US)
  Receive Date: 20180215
  Receipt Date: 20180215
  Transmission Date: 20180509
  Serious: Yes (Other)
  Sender: FDA-Public Use
  Company Number: US-ROCHE-1861954

PATIENT
  Age: 35 Year
  Sex: Female
  Weight: 76.4 kg

DRUGS (7)
  1. VELIPARIB [Suspect]
     Active Substance: VELIPARIB
     Dosage: ROUTE AND FREQUENCY PER PROTOCOL.
     Route: 048
     Dates: start: 20160518
  2. BEVACIZUMAB. [Suspect]
     Active Substance: BEVACIZUMAB
     Dosage: ROUTE AND FREQUENCY PER PROTOCOL.
     Route: 042
     Dates: start: 20160518
  3. VELIPARIB [Suspect]
     Active Substance: VELIPARIB
     Dosage: ROUTE AND FREQUENCY PER PROTOCOL.
     Route: 048
     Dates: start: 20160608
  4. BEVACIZUMAB. [Suspect]
     Active Substance: BEVACIZUMAB
     Indication: OVARIAN EPITHELIAL CANCER
     Dosage: ROUTE AND FREQUENCY PER PROTOCOL.
     Route: 042
     Dates: start: 20160427
  5. VELIPARIB [Suspect]
     Active Substance: VELIPARIB
     Dosage: ROUTE AND FREQUENCY PER PROTOCOL.
     Route: 048
     Dates: start: 20160427
  6. BEVACIZUMAB. [Suspect]
     Active Substance: BEVACIZUMAB
     Dosage: ROUTE AND FREQUENCY PER PROTOCOL.
     Route: 042
     Dates: start: 20160608
  7. VELIPARIB [Suspect]
     Active Substance: VELIPARIB
     Indication: OVARIAN EPITHELIAL CANCER
     Dosage: ROUTE AND FREQUENCY PER PROTOCOL.
     Route: 048
     Dates: start: 20160406

REACTIONS (3)
  - White blood cell count decreased [Unknown]
  - Thrombotic thrombocytopenic purpura [Unknown]
  - Neutrophil count decreased [Unknown]
